FAERS Safety Report 13212401 (Version 3)
Quarter: 2017Q2

REPORT INFORMATION
  Report Type: Report from Study
  Country: IT (occurrence: IT)
  Receive Date: 20170210
  Receipt Date: 20170518
  Transmission Date: 20170830
  Serious: Yes (Disabling)
  Sender: FDA-Public Use
  Company Number: IT-ROCHE-1833287

PATIENT
  Age: 57 Year
  Sex: Female
  Weight: 48 kg

DRUGS (8)
  1. FUROSEMIDE. [Concomitant]
     Active Substance: FUROSEMIDE
     Dosage: PERIOD: 11 YEARS
     Route: 048
     Dates: start: 20050315
  2. SPIRONOLACTONE. [Concomitant]
     Active Substance: SPIRONOLACTONE
     Route: 048
     Dates: start: 20050315
  3. COBIMETINIB [Suspect]
     Active Substance: COBIMETINIB
     Indication: METASTATIC MALIGNANT MELANOMA
     Route: 048
     Dates: start: 20160804, end: 20161122
  4. VEMURAFENIB [Suspect]
     Active Substance: VEMURAFENIB
     Indication: METASTATIC MALIGNANT MELANOMA
     Dosage: 240 MG TO 740 MG, PERIOD: 8 MONTHS
     Route: 048
     Dates: start: 201604
  5. BISOPROLOL HEMIFUMARATE [Concomitant]
     Active Substance: BISOPROLOL FUMARATE
     Dosage: PERIOD: 11 YEARS
     Route: 048
     Dates: end: 20050315
  6. METHYLPREDNISOLONE. [Concomitant]
     Active Substance: METHYLPREDNISOLONE
     Dosage: PERIOD: 11 YEARS
     Route: 048
     Dates: start: 20050315
  7. MORPHINE [Concomitant]
     Active Substance: MORPHINE
     Route: 058
     Dates: start: 20050315
  8. METFORMIN HYDROCHLORIDE. [Concomitant]
     Active Substance: METFORMIN HYDROCHLORIDE
     Indication: DIABETES MELLITUS
     Route: 048
     Dates: start: 20050315

REACTIONS (4)
  - Disease progression [Not Recovered/Not Resolved]
  - Hypertension [Recovering/Resolving]
  - Seborrhoeic keratosis [Unknown]
  - Nausea [Unknown]

NARRATIVE: CASE EVENT DATE: 20161123
